FAERS Safety Report 7467064-2 (Version None)
Quarter: 2011Q2

REPORT INFORMATION
  Report Type: 
  Country: None (occurrence: None)
  Receive Date: 20110509
  Receipt Date: 20110428
  Transmission Date: 20111010
  Serious: Yes (Hospitalization)
  Sender: FDA-Public Use
  Company Number: US-ASTRAZENECA-2011SE24664

PATIENT
  Age: 47 Year
  Sex: Male
  Weight: 83.9 kg

DRUGS (1)
  1. SEROQUEL XR [Suspect]
     Indication: MAJOR DEPRESSION
     Route: 048
     Dates: start: 20100101

REACTIONS (2)
  - VISUAL IMPAIRMENT [None]
  - ACTIVITIES OF DAILY LIVING IMPAIRED [None]
